FAERS Safety Report 4908840-7 (Version None)
Quarter: 2006Q1

REPORT INFORMATION
  Report Type: 
  Country: None (occurrence: None)
  Receive Date: 20060210
  Receipt Date: 20040218
  Transmission Date: 20060701
  Serious: Yes (Hospitalization)
  Sender: FDA-Public Use
  Company Number: PHHO2004JP02583

PATIENT
  Age: 65 Year
  Sex: Male
  Weight: 67 kg

DRUGS (5)
  1. DIOVAN [Suspect]
     Indication: ESSENTIAL HYPERTENSION
     Dosage: 80 MG / DAY
     Route: 048
     Dates: start: 20021106
  2. PANALDINE [Suspect]
     Indication: ANGINA PECTORIS
     Dosage: 200 MG / DAY
     Route: 048
     Dates: start: 20021106
  3. ASPIRIN [Suspect]
     Indication: ANGINA PECTORIS
     Dosage: 100 MG / DAY
     Route: 048
     Dates: start: 20021106
  4. SIGMART [Suspect]
     Indication: ANGINA PECTORIS
     Dosage: 15 MG / DAY
     Route: 048
     Dates: start: 20021106
  5. LIPOVAS [Suspect]
     Indication: HYPERLIPIDAEMIA
     Dosage: 5 MG / DAY
     Route: 048
     Dates: start: 20021106

REACTIONS (6)
  - ANGINA PECTORIS [None]
  - ANGINA UNSTABLE [None]
  - BLOOD PRESSURE DECREASED [None]
  - CHEST PAIN [None]
  - CORONARY ARTERY RESTENOSIS [None]
  - CORONARY ARTERY SURGERY [None]
